FAERS Safety Report 23450410 (Version 1)
Quarter: 2024Q1

REPORT INFORMATION
  Report Type: Spontaneous
  Country: US (occurrence: US)
  Receive Date: 20240129
  Receipt Date: 20240129
  Transmission Date: 20240409
  Serious: Yes (Other)
  Sender: FDA-Public Use
  Company Number: US-BEH-2024167609

PATIENT
  Age: 11 Year
  Sex: Female

DRUGS (4)
  1. ALBUMIN HUMAN [Suspect]
     Active Substance: ALBUMIN HUMAN
     Indication: Nephrotic syndrome
     Dosage: AUGMENTED DIURESIS
     Route: 065
  2. ALBUMIN HUMAN [Suspect]
     Active Substance: ALBUMIN HUMAN
     Indication: Acute kidney injury
     Dosage: 1000 MILLIGRAM/KILOGRAM, EVERY 12 HOURS (AQUADEX)
     Route: 065
  3. ALBUMIN HUMAN [Suspect]
     Active Substance: ALBUMIN HUMAN
     Indication: Diuretic therapy
  4. FUROSEMIDE [Concomitant]
     Active Substance: FUROSEMIDE
     Indication: Acute kidney injury
     Route: 042

REACTIONS (2)
  - Respiratory distress [Unknown]
  - Pulmonary oedema [Unknown]
